FAERS Safety Report 10801444 (Version 4)
Quarter: 2015Q3

REPORT INFORMATION
  Report Type: Spontaneous
  Country: ES (occurrence: ES)
  Receive Date: 20150217
  Receipt Date: 20150805
  Transmission Date: 20151125
  Serious: Yes (Other)
  Sender: FDA-Public Use
  Company Number: ES-AMGEN-ESPSP2015009961

PATIENT
  Age: 79 Year
  Sex: Female

DRUGS (2)
  1. ORFIDAL [Concomitant]
     Active Substance: LORAZEPAM
     Dosage: UNK UNK, (HALF PILL) QD
  2. PROLIA [Suspect]
     Active Substance: DENOSUMAB
     Indication: OSTEOPOROSIS
     Dosage: UNK
     Route: 065
     Dates: start: 201405

REACTIONS (3)
  - Osteonecrosis of jaw [Not Recovered/Not Resolved]
  - Tooth disorder [Not Recovered/Not Resolved]
  - Impaired healing [Not Recovered/Not Resolved]
